FAERS Safety Report 16584970 (Version 1)
Quarter: 2019Q3

REPORT INFORMATION
  Report Type: Spontaneous
  Country: DE (occurrence: DE)
  Receive Date: 20190717
  Receipt Date: 20190717
  Transmission Date: 20191004
  Serious: Yes (Hospitalization)
  Sender: FDA-Public Use
  Company Number: DE-PFIZER INC-2019303666

PATIENT
  Age: 95 Year
  Sex: Female

DRUGS (4)
  1. RAMIPRIL. [Suspect]
     Active Substance: RAMIPRIL
     Dosage: UNK UNK, BID
  2. NITRENDIPINE [Suspect]
     Active Substance: NITRENDIPINE
     Dosage: 10 MG, BID (10 MG, 1-0-1-0)
  3. HYDROCHLOROTHIAZIDE. [Suspect]
     Active Substance: HYDROCHLOROTHIAZIDE
     Dosage: NK MG, 1-0-0-0
  4. RAMIPRIL. [Suspect]
     Active Substance: RAMIPRIL
     Dosage: 5 MG, 1-0-1-0

REACTIONS (2)
  - General physical health deterioration [Unknown]
  - Fall [Unknown]
